FAERS Safety Report 9200754 (Version 1)
Quarter: 2013Q1

REPORT INFORMATION
  Report Type: Spontaneous
  Country: US (occurrence: None)
  Receive Date: 20130328
  Receipt Date: 20130328
  Transmission Date: 20140127
  Serious: Yes (Hospitalization)
  Sender: FDA-Public Use
  Company Number: None

PATIENT
  Age: 85 Year
  Sex: Male
  Weight: 110 kg

DRUGS (8)
  1. WARFARIN [Suspect]
     Indication: ATRIAL FIBRILLATION
     Dosage: 2.5 MG DAILY-5 DAYS/WK PO ?PRIOR TO ADMISSION
     Route: 048
  2. ACETAMINOPHEN [Concomitant]
  3. ALLOPURINOL [Concomitant]
  4. FERROUS GLUCONATE [Concomitant]
  5. FOLIC ACID [Concomitant]
  6. LACTOBACILLUS [Concomitant]
  7. NYSTATIN [Concomitant]
  8. OMEPRAZOLE [Concomitant]

REACTIONS (4)
  - Drug interaction [None]
  - Urosepsis [None]
  - Clostridium difficile infection [None]
  - Atrial fibrillation [None]
